FAERS Safety Report 19614792 (Version 1)
Quarter: 2021Q3

REPORT INFORMATION
  Report Type: Spontaneous
  Country: CN (occurrence: CN)
  Receive Date: 20210727
  Receipt Date: 20210727
  Transmission Date: 20211014
  Serious: Yes (Other)
  Sender: FDA-Public Use
  Company Number: CN-PFIZER INC-2021874398

PATIENT
  Age: 9 Week
  Sex: Female
  Weight: 6 kg

DRUGS (2)
  1. ZITHROMAX [Suspect]
     Active Substance: AZITHROMYCIN DIHYDRATE
     Indication: NASOPHARYNGITIS
     Dosage: 50 MG, DAILY
     Route: 048
     Dates: start: 20210701, end: 20210703
  2. CEFAZOLIN SODIUM. [Suspect]
     Active Substance: CEFAZOLIN SODIUM
     Dosage: UNK
     Route: 041
     Dates: start: 20210703, end: 20210703

REACTIONS (8)
  - Viral infection [Unknown]
  - Rash [Unknown]
  - Tachycardia [Unknown]
  - Respiratory rate increased [Unknown]
  - Fatigue [Unknown]
  - Hypersensitivity [Unknown]
  - Mental fatigue [Unknown]
  - Heart rate abnormal [Unknown]

NARRATIVE: CASE EVENT DATE: 20210703
